FAERS Safety Report 7457366-8 (Version None)
Quarter: 2011Q2

REPORT INFORMATION
  Report Type: 
  Country: None (occurrence: None)
  Receive Date: 20110504
  Receipt Date: 20110420
  Transmission Date: 20111010
  Serious: Yes (Hospitalization)
  Sender: FDA-Public Use
  Company Number: CA-JNJFOC-20110410272

PATIENT
  Sex: Female
  Weight: 58 kg

DRUGS (3)
  1. REMICADE [Suspect]
     Indication: CROHN'S DISEASE
     Route: 042
  2. PREDNISONE [Concomitant]
  3. ZITHROMAX [Suspect]
     Indication: BRONCHITIS

REACTIONS (3)
  - HYPOAESTHESIA [None]
  - ALOPECIA [None]
  - BRONCHITIS [None]
